FAERS Safety Report 13084938 (Version 3)
Quarter: 2020Q3

REPORT INFORMATION
  Report Type: Report from Study
  Country: FR (occurrence: FR)
  Receive Date: 20170104
  Receipt Date: 20171208
  Transmission Date: 20201104
  Serious: Yes (Hospitalization)
  Sender: FDA-Public Use
  Company Number: FR-JNJFOC-20161223491

PATIENT
  Age: 47 Year
  Sex: Female
  Weight: 90 kg

DRUGS (5)
  1. THALIDOMIDE [Concomitant]
     Active Substance: THALIDOMIDE
     Indication: PLASMA CELL MYELOMA
     Route: 048
     Dates: start: 20160718, end: 20161106
  2. DARATUMUMAB [Suspect]
     Active Substance: DARATUMUMAB
     Indication: PLASMA CELL MYELOMA
     Route: 042
     Dates: start: 20160718, end: 20161024
  3. DEXAMETHASONE. [Concomitant]
     Active Substance: DEXAMETHASONE
     Indication: PLASMA CELL MYELOMA
     Route: 048
     Dates: start: 20160718, end: 20161025
  4. DARATUMUMAB [Suspect]
     Active Substance: DARATUMUMAB
     Route: 042
  5. BORTEZOMIB. [Concomitant]
     Active Substance: BORTEZOMIB
     Indication: PLASMA CELL MYELOMA
     Route: 058
     Dates: start: 20160718, end: 20161020

REACTIONS (1)
  - Lung disorder [Recovered/Resolved]

NARRATIVE: CASE EVENT DATE: 20161227
